FAERS Safety Report 5361773-7 (Version None)
Quarter: 2007Q2

REPORT INFORMATION
  Report Type: 
  Country: None (occurrence: None)
  Receive Date: 20070619
  Receipt Date: 20070613
  Transmission Date: 20071010
  Serious: Yes (Hospitalization)
  Sender: FDA-Public Use
  Company Number: FR-JNJFOC-20070603451

PATIENT
  Age: 76 Year
  Sex: Female

DRUGS (8)
  1. HALDOL [Suspect]
     Indication: DRUG USE FOR UNKNOWN INDICATION
     Route: 048
  2. MODOPAR LP 125 [Interacting]
     Indication: DRUG USE FOR UNKNOWN INDICATION
     Route: 048
  3. LEXOMIL [Interacting]
     Indication: DRUG USE FOR UNKNOWN INDICATION
     Route: 048
  4. NOCTRAN [Interacting]
     Indication: DRUG USE FOR UNKNOWN INDICATION
     Route: 048
  5. EFFEXOR [Concomitant]
  6. NEXIUM [Concomitant]
  7. SIMVASTATIN [Concomitant]
  8. FORLAX [Concomitant]

REACTIONS (2)
  - DRUG INTERACTION [None]
  - FALL [None]
